FAERS Safety Report 8888864 (Version 1)
Quarter: 2012Q4

REPORT INFORMATION
  Report Type: 
  Country: GR (occurrence: GR)
  Receive Date: 20121106
  Receipt Date: 20121106
  Transmission Date: 20130627
  Serious: Yes (Death, Hospitalization, Other)
  Sender: FDA-Public Use
  Company Number: PHHY2012GR079943

PATIENT
  Age: 46 Year
  Sex: Female

DRUGS (10)
  1. AFINITOR [Suspect]
     Indication: BREAST CANCER
     Dosage: 5 mg, QD
     Route: 048
     Dates: start: 20120722, end: 20120823
  2. AFINITOR [Suspect]
     Dates: start: 20120830, end: 20121011
  3. THYROHORMONE [Concomitant]
     Indication: THYROID DISORDER
     Dosage: 0.1 at a dose of 1 1/2 x 1 daily
     Route: 048
     Dates: start: 1985
  4. LAPRAZOL [Concomitant]
     Indication: GASTROINTESTINAL DISORDER
     Dosage: 30 mg, QD
     Route: 048
     Dates: start: 2008
  5. LIPITOR [Concomitant]
     Indication: HYPERLIPIDAEMIA
     Dosage: 20 mg, QD
     Dates: start: 2012
  6. AROMASIN [Concomitant]
     Indication: BREAST CANCER
     Dosage: 25 mg, QD
     Route: 048
     Dates: start: 2012
  7. ALDACTONE [Concomitant]
     Indication: ASCITES
     Dosage: 1/2 x 1
     Route: 048
     Dates: start: 2012
  8. DEPON [Concomitant]
     Indication: PAIN
     Dosage: 2 x 2
     Route: 048
     Dates: start: 2012
  9. PEPTONORM [Concomitant]
     Indication: GASTROINTESTINAL DISORDER
     Dosage: 1 x 3
     Route: 048
     Dates: start: 20120821
  10. NATAMYCIN [Concomitant]
     Indication: STOMATITIS
     Dosage: 1 x 2
     Dates: start: 20100829

REACTIONS (5)
  - Death [Fatal]
  - Haematemesis [Unknown]
  - Haematochezia [Unknown]
  - Gastric haemorrhage [Unknown]
  - Melaena [Recovered/Resolved]
